FAERS Safety Report 14225362 (Version 1)
Quarter: 2017Q4

REPORT INFORMATION
  Report Type: Spontaneous
  Country: US (occurrence: US)
  Receive Date: 20171126
  Receipt Date: 20171126
  Transmission Date: 20180321
  Serious: No
  Sender: FDA-Public Use
  Company Number: None

PATIENT
  Age: 48 Year
  Sex: Male
  Weight: 103.5 kg

DRUGS (5)
  1. LOW-DOSE ASPRIN [Concomitant]
  2. FISH OIL [Concomitant]
     Active Substance: FISH OIL
  3. SERTRALINE [Suspect]
     Active Substance: SERTRALINE HYDROCHLORIDE
     Indication: GENERALISED ANXIETY DISORDER
     Dosage: ?          QUANTITY:1 TABLET(S);?
     Route: 048
  4. NIACIN. [Concomitant]
     Active Substance: NIACIN
  5. MULTIVITAMIN [Concomitant]
     Active Substance: VITAMINS

REACTIONS (2)
  - Product quality issue [None]
  - Panic attack [None]

NARRATIVE: CASE EVENT DATE: 20171115
